FAERS Safety Report 6473227-5 (Version None)
Quarter: 2009Q4

REPORT INFORMATION
  Report Type: 
  Country: None (occurrence: None)
  Receive Date: 20091204
  Receipt Date: 20081028
  Transmission Date: 20100525
  Serious: Yes (Death, Hospitalization, Disabling)
  Sender: FDA-Public Use
  Company Number: JP-ELI_LILLY_AND_COMPANY-JP200808004458

PATIENT
  Sex: Male
  Weight: 72 kg

DRUGS (3)
  1. GEMZAR [Suspect]
     Indication: PANCREATIC CARCINOMA STAGE IV
     Dosage: 1000 MG/M2, OTHER
     Route: 042
     Dates: start: 20080226, end: 20080512
  2. GEMZAR [Suspect]
     Dosage: 1600 MG, UNK
     Route: 042
     Dates: start: 20080523
  3. GEMZAR [Suspect]
     Dosage: 1400 MG, UNK
     Route: 042
     Dates: start: 20080725, end: 20080801

REACTIONS (2)
  - HAEMOLYTIC URAEMIC SYNDROME [None]
  - UPPER GASTROINTESTINAL HAEMORRHAGE [None]
